FAERS Safety Report 5572200-9 (Version None)
Quarter: 2007Q4

REPORT INFORMATION
  Report Type: 
  Country: None (occurrence: None)
  Receive Date: 20071221
  Receipt Date: 20071211
  Transmission Date: 20080405
  Serious: Yes (Hospitalization, Other)
  Sender: FDA-Public Use
  Company Number: US-PFIZER INC-2007104817

PATIENT
  Sex: Female
  Weight: 170 kg

DRUGS (4)
  1. DILANTIN [Suspect]
     Indication: EPILEPSY
  2. PHENYTOIN [Suspect]
     Indication: EPILEPSY
  3. LAMICTAL [Concomitant]
  4. PHENOBARBITAL TAB [Concomitant]

REACTIONS (5)
  - ANTICONVULSANT DRUG LEVEL DECREASED [None]
  - CAESAREAN SECTION [None]
  - CONVULSION [None]
  - INTENTIONAL DRUG MISUSE [None]
  - PRE-ECLAMPSIA [None]
